FAERS Safety Report 5149121-9 (Version None)
Quarter: 2006Q4

REPORT INFORMATION
  Report Type: 
  Country: None (occurrence: None)
  Receive Date: 20061113
  Receipt Date: 20060801
  Transmission Date: 20070319
  Serious: No
  Sender: FDA-Public Use
  Company Number: 451374

PATIENT
  Age: 71 Year
  Sex: Female

DRUGS (14)
  1. COREG [Suspect]
     Indication: DRUG USE FOR UNKNOWN INDICATION
     Dosage: 25MG PER DAY
     Route: 048
  2. ATENOLOL [Suspect]
     Indication: DRUG USE FOR UNKNOWN INDICATION
     Dosage: 75MG TWICE PER DAY
  3. LISINOPRIL [Concomitant]
  4. LASIX [Concomitant]
  5. NORVASC [Concomitant]
  6. BYETTA [Concomitant]
  7. GLIPIZIDE [Concomitant]
  8. LIPITOR [Concomitant]
  9. ISOSORBIDE [Concomitant]
  10. APAP TAB [Concomitant]
  11. STOOL SOFTENER [Concomitant]
  12. VITAMINE C [Concomitant]
  13. GH3X [Concomitant]
  14. LANTUS [Concomitant]

REACTIONS (2)
  - DIZZINESS [None]
  - VISION BLURRED [None]
